FAERS Safety Report 7335392-7 (Version None)
Quarter: 2011Q1

REPORT INFORMATION
  Report Type: 
  Country: None (occurrence: None)
  Receive Date: 20110307
  Receipt Date: 20110214
  Transmission Date: 20110831
  Serious: Yes (Other)
  Sender: FDA-Public Use
  Company Number: NO-ROCHE-763704

PATIENT
  Age: 59 Year
  Sex: Female

DRUGS (3)
  1. PREDNISOLONE [Suspect]
     Route: 065
  2. NAPROXEN SODIUM [Suspect]
     Route: 065
  3. IBUX [Suspect]
     Route: 065

REACTIONS (2)
  - HAEMORRHAGIC ANAEMIA [None]
  - GASTRIC ULCER [None]
